FAERS Safety Report 20868840 (Version 1)
Quarter: 2022Q2

REPORT INFORMATION
  Report Type: Spontaneous
  Country: US (occurrence: US)
  Receive Date: 20220524
  Receipt Date: 20220524
  Transmission Date: 20220721
  Serious: No
  Sender: FDA-Public Use
  Company Number: US-PFIZER INC-202200657107

PATIENT
  Age: 71 Year
  Sex: Female

DRUGS (1)
  1. ACCUPRIL [Suspect]
     Active Substance: QUINAPRIL HYDROCHLORIDE
     Dosage: UNK

REACTIONS (4)
  - Recalled product administered [Unknown]
  - Blood pressure increased [Unknown]
  - Hypotension [Unknown]
  - Blood pressure abnormal [Unknown]
